FAERS Safety Report 25252105 (Version 1)
Quarter: 2025Q2

REPORT INFORMATION
  Report Type: Spontaneous
  Country: GB (occurrence: GB)
  Receive Date: 20250429
  Receipt Date: 20250429
  Transmission Date: 20250716
  Serious: Yes (Other)
  Sender: AMERICAN REGENT
  Company Number: GB-AMERICAN REGENT INC-2025001753

PATIENT
  Age: 31 Year
  Sex: Female

DRUGS (1)
  1. FERINJECT [Suspect]
     Active Substance: FERRIC CARBOXYMALTOSE
     Indication: Postpartum haemorrhage
     Route: 065

REACTIONS (4)
  - Maternal exposure during breast feeding [Unknown]
  - Pruritus [Recovering/Resolving]
  - Urticaria [Unknown]
  - Erythema [Unknown]

NARRATIVE: CASE EVENT DATE: 20250415
